FAERS Safety Report 6073141-3 (Version None)
Quarter: 2009Q1

REPORT INFORMATION
  Report Type: 
  Country: None (occurrence: None)
  Receive Date: 20090211
  Receipt Date: 20090202
  Transmission Date: 20090719
  Serious: Yes (Life-Threatening)
  Sender: FDA-Public Use
  Company Number: GR-ALLERGAN-0812451US

PATIENT
  Sex: Female
  Weight: 80 kg

DRUGS (2)
  1. ALPHAGAN [Suspect]
     Indication: GLAUCOMA
  2. COSOPT [Concomitant]
     Indication: DRUG USE FOR UNKNOWN INDICATION

REACTIONS (1)
  - APNOEIC ATTACK [None]
